FAERS Safety Report 4807230-5 (Version None)
Quarter: 2005Q4

REPORT INFORMATION
  Report Type: 
  Country: None (occurrence: None)
  Receive Date: 20051020
  Receipt Date: 20051020
  Transmission Date: 20060501
  Serious: Yes (Hospitalization)
  Sender: FDA-Public Use
  Company Number: None

PATIENT
  Age: 49 Year
  Sex: Male
  Weight: 101.2 kg

DRUGS (11)
  1. AZITHROMYCIN [Suspect]
  2. HYDROXYZINE PAMOATE [Concomitant]
  3. QUETIAPINE FUMARATE [Concomitant]
  4. GABAPENTIN [Concomitant]
  5. OXCARBAZEPINE [Concomitant]
  6. TOPIRAMATE [Concomitant]
  7. GUAIFENESIN [Concomitant]
  8. ARIPIPRAZOLE [Concomitant]
  9. OLANZAPINE [Concomitant]
  10. HCTZ 25/TRIAMTERENE [Concomitant]
  11. OMEPRAZOLE [Concomitant]

REACTIONS (3)
  - ERYTHEMA [None]
  - PRURITUS [None]
  - RASH [None]
